FAERS Safety Report 18474126 (Version 6)
Quarter: 2021Q3

REPORT INFORMATION
  Report Type: Spontaneous
  Country: US (occurrence: US)
  Receive Date: 20201106
  Receipt Date: 20210831
  Transmission Date: 20211014
  Serious: Yes (Other)
  Sender: FDA-Public Use
  Company Number: US-PFIZER INC-2020427107

PATIENT
  Age: 41 Year
  Sex: Female

DRUGS (5)
  1. GABAPENTIN. [Concomitant]
     Active Substance: GABAPENTIN
     Dosage: UNK, AS NEEDED
  2. XELJANZ XR [Suspect]
     Active Substance: TOFACITINIB CITRATE
     Dosage: 11 MG, ONCE DAILY
     Route: 048
     Dates: end: 20201223
  3. XELJANZ XR [Suspect]
     Active Substance: TOFACITINIB CITRATE
     Indication: RHEUMATOID ARTHRITIS
     Dosage: 11 MG, DAILY
     Route: 048
     Dates: start: 202009, end: 202010
  4. XELJANZ XR [Suspect]
     Active Substance: TOFACITINIB CITRATE
     Dosage: 11 MG, DAILY
     Route: 048
     Dates: start: 20201101, end: 20201127
  5. XELJANZ XR [Suspect]
     Active Substance: TOFACITINIB CITRATE
     Dosage: 11 MG, ONCE DAILY
     Route: 048
     Dates: start: 20210211, end: 20210214

REACTIONS (18)
  - Drug ineffective [Unknown]
  - Rash erythematous [Unknown]
  - Memory impairment [Unknown]
  - Depression [Unknown]
  - Nausea [Not Recovered/Not Resolved]
  - Joint range of motion decreased [Recovering/Resolving]
  - Gastrooesophageal reflux disease [Not Recovered/Not Resolved]
  - Rash papular [Unknown]
  - Intentional product misuse [Unknown]
  - Arthralgia [Unknown]
  - Product dose omission issue [Unknown]
  - Joint lock [Recovering/Resolving]
  - Pain [Not Recovered/Not Resolved]
  - Dry eye [Unknown]
  - Sensitivity to weather change [Recovering/Resolving]
  - Pruritus [Unknown]
  - Pain [Recovering/Resolving]
  - Urticaria [Unknown]

NARRATIVE: CASE EVENT DATE: 2020
